FAERS Safety Report 22596311 (Version 1)
Quarter: 2023Q2

REPORT INFORMATION
  Report Type: Spontaneous
  Country: US (occurrence: None)
  Receive Date: 20230613
  Receipt Date: 20230613
  Transmission Date: 20230721
  Serious: Yes (Hospitalization)
  Sender: FDA-Public Use
  Company Number: None

PATIENT
  Age: 87 Year
  Sex: Male
  Weight: 91.67 kg

DRUGS (22)
  1. ABIRATERONE [Suspect]
     Active Substance: ABIRATERONE
     Indication: Prostate cancer
     Dosage: FREQUENCY : DAILY;?
     Route: 048
     Dates: start: 20230222
  2. PREDNISONE [Suspect]
     Active Substance: PREDNISONE
     Indication: Prostate cancer
     Dosage: FREQUENCY : TWICE A DAY;?
     Route: 048
  3. ALLOPURINOL [Concomitant]
     Active Substance: ALLOPURINOL
  4. ATORVASTATIN [Concomitant]
  5. BICALUTAMIDE [Concomitant]
     Active Substance: BICALUTAMIDE
  6. CARVEDILOL [Concomitant]
     Active Substance: CARVEDILOL
  7. CENTURM SILVER MENS ULTRA [Concomitant]
  8. CERTAVITE SENIOR [Concomitant]
  9. STOOL SOFTENER (DOCUSATE) [Concomitant]
     Active Substance: DOCUSATE
  10. ELIQUIS [Concomitant]
     Active Substance: APIXABAN
  11. FLOMAX [Concomitant]
     Active Substance: TAMSULOSIN HYDROCHLORIDE
  12. GLUCERNA [Concomitant]
     Active Substance: AMINO ACIDS\DEXTROSE\ELECTROLYTES NOS\SOYBEAN OIL\VITAMINS
  13. ISOSORBIDE [Concomitant]
     Active Substance: ISOSORBIDE
  14. KEFLEX [Concomitant]
     Active Substance: CEPHALEXIN
  15. LASIX [Concomitant]
     Active Substance: FUROSEMIDE
  16. NITROGLYCERIN [Concomitant]
     Active Substance: NITROGLYCERIN
  17. OLOPATADINE [Concomitant]
     Active Substance: OLOPATADINE
  18. PEPCID [Concomitant]
     Active Substance: FAMOTIDINE
  19. PREDNISONE [Concomitant]
     Active Substance: PREDNISONE
  20. SENOKOT [Concomitant]
     Active Substance: SENNOSIDES
  21. NIACIN [Concomitant]
     Active Substance: NIACIN
  22. TYLENOL [Concomitant]
     Active Substance: ACETAMINOPHEN

REACTIONS (4)
  - Urinary tract infection [None]
  - Metastases to bone [None]
  - Metastases to liver [None]
  - Hypersomnia [None]

NARRATIVE: CASE EVENT DATE: 20230611
